FAERS Safety Report 7773432-1 (Version None)
Quarter: 2011Q3

REPORT INFORMATION
  Report Type: 
  Country: None (occurrence: None)
  Receive Date: 20110922
  Receipt Date: 20110913
  Transmission Date: 20111222
  Serious: Yes (Other)
  Sender: FDA-Public Use
  Company Number: US-ASTRAZENECA-2011SE32345

PATIENT
  Age: 81 Year
  Sex: Female

DRUGS (1)
  1. NEXIUM [Suspect]
     Route: 048

REACTIONS (9)
  - FALL [None]
  - UPPER LIMB FRACTURE [None]
  - OSTEOPOROSIS [None]
  - HIATUS HERNIA [None]
  - PAIN [None]
  - WRIST FRACTURE [None]
  - NAUSEA [None]
  - VOMITING [None]
  - CLAVICLE FRACTURE [None]
